FAERS Safety Report 9129331 (Version 1)
Quarter: 2013Q1

REPORT INFORMATION
  Report Type: Spontaneous
  Country: AU (occurrence: AU)
  Receive Date: 20130125
  Receipt Date: 20130125
  Transmission Date: 20140127
  Serious: Yes (Other)
  Sender: FDA-Public Use
  Company Number: AU-ROCHE-1182044

PATIENT
  Age: 53 Year
  Sex: 0

DRUGS (14)
  1. NAPROXEN [Suspect]
     Indication: PAIN
     Route: 048
  2. AMILORIDE HYDROCHLORIDE [Interacting]
     Indication: ESSENTIAL HYPERTENSION
     Route: 048
  3. TRIMETHOPRIM [Suspect]
     Indication: URINARY TRACT DISORDER
     Route: 048
     Dates: start: 20121109, end: 20121113
  4. HYDROCHLOROTHIAZIDE [Interacting]
     Indication: PRODUCT USED FOR UNKNOWN INDICATION
     Route: 065
  5. DIAZEPAM [Concomitant]
     Indication: ANXIETY DISORDER
  6. ENDONE [Concomitant]
     Indication: PAIN
  7. GABAPENTIN [Concomitant]
     Indication: PAIN
  8. METHADONE HYDROCHLORIDE [Concomitant]
     Indication: PAIN
  9. PARACETAMOL [Concomitant]
     Indication: PAIN
  10. RABEPRAZOLE SODIUM [Concomitant]
     Indication: OESOPHAGEAL DISORDER
  11. TEMAZEPAM [Concomitant]
     Indication: SLEEP DISORDER
  12. TRAMADOL HYDROCHLORIDE [Concomitant]
  13. DOXYLAMINE [Concomitant]
     Indication: PAIN
  14. CODEINE [Concomitant]
     Indication: PAIN

REACTIONS (2)
  - Renal failure [Recovered/Resolved]
  - Hyponatraemia [Recovered/Resolved]
